FAERS Safety Report 10179673 (Version 2)
Quarter: 2014Q2

REPORT INFORMATION
  Report Type: Spontaneous
  Country: US (occurrence: US)
  Receive Date: 20140519
  Receipt Date: 20140618
  Transmission Date: 20141212
  Serious: No
  Sender: FDA-Public Use
  Company Number: US-009507513-1405USA000784

PATIENT
  Sex: Female

DRUGS (13)
  1. OXYTROL FOR WOMEN [Suspect]
     Indication: MICTURITION URGENCY
     Dosage: 1 DF, Q4D
     Route: 062
     Dates: start: 201308, end: 201310
  2. OXYTROL FOR WOMEN [Suspect]
     Indication: HYPERTONIC BLADDER
  3. DILTIAZEM HYDROCHLORIDE [Concomitant]
     Indication: HYPERTENSION
     Dosage: UNK, UNKNOWN
  4. ISOSORBIDE [Concomitant]
     Indication: ARTHRITIS
     Dosage: 120 MG, QD
  5. COZAAR [Concomitant]
     Indication: PRODUCT USED FOR UNKNOWN INDICATION
     Dosage: UNK, UNKNOWN
  6. LIOTHYRONINE SODIUM [Concomitant]
     Indication: PRODUCT USED FOR UNKNOWN INDICATION
     Dosage: UNK, UNKNOWN
  7. TYLENOL WITH CODEINE #3 [Concomitant]
     Indication: PRODUCT USED FOR UNKNOWN INDICATION
     Dosage: UNK, UNKNOWN
  8. TRAMADOL HYDROCHLORIDE [Concomitant]
     Indication: PRODUCT USED FOR UNKNOWN INDICATION
     Dosage: UNK, UNKNOWN
  9. TEMAZEPAM [Concomitant]
     Indication: SLEEP DISORDER THERAPY
     Dosage: UNK, UNKNOWN
  10. ASCORBIC ACID [Concomitant]
     Indication: PRODUCT USED FOR UNKNOWN INDICATION
     Dosage: UNK, UNKNOWN
  11. VITAMIN D (UNSPECIFIED) [Concomitant]
     Indication: PRODUCT USED FOR UNKNOWN INDICATION
     Dosage: UNK, UNKNOWN
  12. BIOTIN [Concomitant]
     Indication: PRODUCT USED FOR UNKNOWN INDICATION
     Dosage: UNK, UNKNOWN
  13. NITROGLYCERIN [Concomitant]
     Indication: CHEST PAIN
     Dosage: UNK, UNKNOWN

REACTIONS (2)
  - Blood pressure increased [Unknown]
  - Drug effect decreased [Unknown]
